FAERS Safety Report 7919708-6 (Version None)
Quarter: 2011Q4

REPORT INFORMATION
  Report Type: 
  Country: None (occurrence: None)
  Receive Date: 20111115
  Receipt Date: 20111107
  Transmission Date: 20120403
  Serious: Yes (Hospitalization)
  Sender: FDA-Public Use
  Company Number: 1000025275

PATIENT
  Age: 75 Year
  Sex: Male

DRUGS (1)
  1. LEXAPRO [Suspect]
     Dates: start: 20110101

REACTIONS (1)
  - BLINDNESS TRANSIENT [None]
